FAERS Safety Report 14982958 (Version 1)
Quarter: 2018Q2

REPORT INFORMATION
  Report Type: Spontaneous
  Country: US (occurrence: US)
  Receive Date: 20180607
  Receipt Date: 20180607
  Transmission Date: 20180711
  Serious: No
  Sender: FDA-Public Use
  Company Number: US-GLAXOSMITHKLINE-US2018099717

PATIENT
  Sex: Female

DRUGS (1)
  1. VENTOLIN HFA [Suspect]
     Active Substance: ALBUTEROL SULFATE
     Indication: CHRONIC SINUSITIS
     Dosage: 1 PUFF(S), BID
     Route: 055

REACTIONS (2)
  - Product use in unapproved indication [Not Recovered/Not Resolved]
  - Wrong technique in product usage process [Unknown]
